FAERS Safety Report 6878302-9 (Version None)
Quarter: 2010Q3

REPORT INFORMATION
  Report Type: 
  Country: None (occurrence: None)
  Receive Date: 20100728
  Receipt Date: 20100719
  Transmission Date: 20110219
  Serious: Yes (Hospitalization)
  Sender: FDA-Public Use
  Company Number: FR-PFIZER INC-2010089563

PATIENT
  Age: 49 Year
  Sex: Male

DRUGS (4)
  1. ZYVOX [Suspect]
     Indication: ENTEROCOCCAL SEPSIS
     Dosage: UNK
     Dates: start: 20080101, end: 20080128
  2. FLUCONAZOLE [Suspect]
     Indication: ENTEROCOCCAL SEPSIS
     Dosage: UNK
     Dates: start: 20080101, end: 20080117
  3. IMIPENEM AND CILASTATIN [Suspect]
     Indication: ENTEROCOCCAL SEPSIS
     Dosage: UNK
     Dates: start: 20080101, end: 20080128
  4. NEBCIN [Suspect]
     Indication: ENTEROCOCCAL SEPSIS
     Dosage: UNK
     Dates: start: 20080101, end: 20080206

REACTIONS (1)
  - JAUNDICE CHOLESTATIC [None]
